FAERS Safety Report 16281637 (Version 1)
Quarter: 2019Q2

REPORT INFORMATION
  Report Type: Spontaneous
  Country: US (occurrence: US)
  Receive Date: 20190507
  Receipt Date: 20190507
  Transmission Date: 20190711
  Serious: Yes (Other)
  Sender: FDA-Public Use
  Company Number: US-PFIZER INC-2019188300

PATIENT
  Age: 37 Year
  Sex: Female
  Weight: 154.22 kg

DRUGS (17)
  1. TYLENOL PM [Concomitant]
     Active Substance: ACETAMINOPHEN\DIPHENHYDRAMINE
     Indication: SLEEP DISORDER
  2. VISTARIL [HYDROXYZINE EMBONATE] [Concomitant]
     Indication: ANXIETY
     Dosage: 50 MG, 3X/DAY
     Route: 048
     Dates: start: 2017
  3. PROPRANOLOL [Concomitant]
     Active Substance: PROPRANOLOL HYDROCHLORIDE
     Indication: MIGRAINE
     Dosage: UNK, 3X/DAY(1 BLUE TABLET TAKEN BY MOUTH LIKE THREE TIMES DAILY  )
     Route: 048
     Dates: start: 201901
  4. PROPRANOLOL [Concomitant]
     Active Substance: PROPRANOLOL HYDROCHLORIDE
     Indication: POST-TRAUMATIC STRESS DISORDER
  5. MELOXICAM. [Concomitant]
     Active Substance: MELOXICAM
     Indication: INFLAMMATION
     Dosage: 7.5 MG, DAILY(1 TABLET TAKEN BY MOUTH DAILY)
     Route: 048
  6. WELLBUTRIN [Concomitant]
     Active Substance: BUPROPION HYDROCHLORIDE
     Indication: BIPOLAR DISORDER
     Dosage: 200 MG, DAILY
     Route: 048
     Dates: start: 2016
  7. ROBAXIN [Concomitant]
     Active Substance: METHOCARBAMOL
     Indication: MUSCLE RELAXANT THERAPY
     Dosage: UNK
     Dates: start: 2017
  8. NORCO [Concomitant]
     Active Substance: ACETAMINOPHEN\HYDROCODONE BITARTRATE
     Indication: BACK PAIN
     Dosage: UNK UNK, DAILY (HYDROCODONE BITARTRATE: 5 MG, PARACETAMOL: 325 MG  5/325MG TABLETS-ABOUT 4 TABLETS )
     Route: 048
     Dates: start: 201810
  9. LYRICA [Suspect]
     Active Substance: PREGABALIN
     Indication: FIBROMYALGIA
     Dosage: 450 MG, 1X/DAY (150MG CAPSULES-3 CAPSULES (450MG) TAKEN BY MOUTH ONCE IN THE MORNING DAILY)
     Route: 048
  10. ZOLOFT [Concomitant]
     Active Substance: SERTRALINE HYDROCHLORIDE
     Indication: BIPOLAR DISORDER
  11. PRAZOSIN. [Concomitant]
     Active Substance: PRAZOSIN
     Dosage: 10 MG, DAILY (2MG CAPSULE-5 CAPSULES TAKEN BY MOUTH DAILY )
     Route: 048
     Dates: start: 2017
  12. ZOLOFT [Concomitant]
     Active Substance: SERTRALINE HYDROCHLORIDE
     Indication: DEPRESSION
     Dosage: 200 MG, DAILY (2 TABLETS TAKEN BY MOUTH DAILY   )
     Route: 048
  13. PRAZOSIN. [Concomitant]
     Active Substance: PRAZOSIN
     Indication: SLEEP TERROR
     Dosage: 10 MG, DAILY (5MG CAPSULE-2 CAPSULES TAKEN BY MOUTH DAILY )
     Route: 048
     Dates: start: 2017
  14. TYLENOL PM [Concomitant]
     Active Substance: ACETAMINOPHEN\DIPHENHYDRAMINE
     Indication: PAIN
     Dosage: UNK, DAILY(4 CAPSULES TAKEN BY MOUTH DAILY AT NIGHT)
     Route: 048
  15. LITHIUM. [Concomitant]
     Active Substance: LITHIUM
     Indication: AFFECTIVE DISORDER
     Dosage: 600 MG, DAILY(-2 TABLETS TAKEN BY MOUTH DAILY IN THE EVENINGS   )
     Route: 048
     Dates: start: 2016
  16. ZOLPIDEM [Concomitant]
     Active Substance: ZOLPIDEM\ZOLPIDEM TARTRATE
     Indication: INSOMNIA
     Dosage: 10 MG, 1X/DAY (TABLET-1 TABLET TAKEN BY MOUTH NIGHTLY )
     Route: 048
     Dates: start: 2016
  17. NORCO [Concomitant]
     Active Substance: ACETAMINOPHEN\HYDROCODONE BITARTRATE
     Indication: NECK SURGERY

REACTIONS (5)
  - Product dose omission [Not Recovered/Not Resolved]
  - Intentional product misuse [Unknown]
  - Mental impairment [Not Recovered/Not Resolved]
  - Drug withdrawal syndrome [Not Recovered/Not Resolved]
  - Loss of personal independence in daily activities [Not Recovered/Not Resolved]

NARRATIVE: CASE EVENT DATE: 20190417
